FAERS Safety Report 7394871-7 (Version None)
Quarter: 2011Q2

REPORT INFORMATION
  Report Type: 
  Country: None (occurrence: None)
  Receive Date: 20110405
  Receipt Date: 20110328
  Transmission Date: 20111010
  Serious: Yes (Hospitalization)
  Sender: FDA-Public Use
  Company Number: A0921310A

PATIENT
  Age: 66 Year
  Sex: Female
  Weight: 60.8 kg

DRUGS (7)
  1. FLOLAN [Suspect]
     Dosage: 32NGKM UNKNOWN
     Route: 042
     Dates: start: 20100621
  2. LASIX [Concomitant]
     Dosage: 30MGD PER DAY
  3. FLOLAN [Suspect]
     Route: 042
     Dates: start: 20100621
  4. COUMADIN [Concomitant]
     Dosage: 4MGD PER DAY
  5. SPIRIVA [Concomitant]
     Dosage: 18MCG PER DAY
  6. TRACLEER [Concomitant]
     Dosage: 125MG TWICE PER DAY
  7. SPIRONOLACTONE [Concomitant]
     Dosage: 25MGD PER DAY

REACTIONS (2)
  - CLOSTRIDIAL INFECTION [None]
  - CATHETER SITE INFECTION [None]
